FAERS Safety Report 7406316-9 (Version None)
Quarter: 2011Q2

REPORT INFORMATION
  Report Type: 
  Country: None (occurrence: None)
  Receive Date: 20110411
  Receipt Date: 20110406
  Transmission Date: 20111010
  Serious: Yes (Hospitalization)
  Sender: FDA-Public Use
  Company Number: US-MERCK-1104USA00729

PATIENT
  Age: 63 Year
  Sex: Female

DRUGS (7)
  1. ZETIA [Suspect]
     Indication: BLOOD CHOLESTEROL
     Route: 048
     Dates: start: 20110301
  2. COZAAR [Concomitant]
     Route: 048
  3. DILANTIN [Concomitant]
     Route: 065
  4. OMEPRAZOLE [Concomitant]
     Route: 065
  5. TRILIPIX [Concomitant]
     Route: 065
  6. DEPAKOTE [Concomitant]
     Route: 065
  7. HYDROCHLOROTHIAZIDE [Concomitant]
     Route: 065

REACTIONS (5)
  - NAUSEA [None]
  - SOMNOLENCE [None]
  - BACK PAIN [None]
  - FATIGUE [None]
  - AGEUSIA [None]
